FAERS Safety Report 4725644-9 (Version None)
Quarter: 2005Q3

REPORT INFORMATION
  Report Type: 
  Country: None (occurrence: None)
  Receive Date: 20050727
  Receipt Date: 20050408
  Transmission Date: 20060218
  Serious: Yes (Hospitalization, Disabling, Other)
  Sender: FDA-Public Use
  Company Number: US-MERCK-0504USA01286

PATIENT
  Age: 50 Year
  Sex: Male
  Weight: 91 kg

DRUGS (10)
  1. VIOXX [Suspect]
     Indication: ARTHRALGIA
     Route: 048
     Dates: start: 19990801, end: 20040901
  2. VIOXX [Suspect]
     Route: 048
     Dates: start: 20001116
  3. VIOXX [Suspect]
     Route: 048
     Dates: start: 20040823
  4. VIOXX [Suspect]
     Route: 048
     Dates: start: 20010301
  5. VIOXX [Suspect]
     Route: 048
     Dates: start: 20030509
  6. VIOXX [Suspect]
     Indication: BACK PAIN
     Route: 048
     Dates: start: 19990801, end: 20040901
  7. VIOXX [Suspect]
     Route: 048
     Dates: start: 20001116
  8. VIOXX [Suspect]
     Route: 048
     Dates: start: 20040823
  9. VIOXX [Suspect]
     Route: 048
     Dates: start: 20010301
  10. VIOXX [Suspect]
     Route: 048
     Dates: start: 20030509

REACTIONS (40)
  - ACUTE MYOCARDIAL INFARCTION [None]
  - ACUTE SINUSITIS [None]
  - ANGINA UNSTABLE [None]
  - ANHEDONIA [None]
  - ANXIETY DISORDER [None]
  - CEREBROVASCULAR ACCIDENT [None]
  - CHEST PAIN [None]
  - CHILLS [None]
  - COLONIC POLYP [None]
  - CONVULSION [None]
  - CORONARY ARTERY ATHEROSCLEROSIS [None]
  - DEPRESSION [None]
  - DYSGEUSIA [None]
  - DYSPEPSIA [None]
  - DYSPNOEA [None]
  - DYSPNOEA EXERTIONAL [None]
  - ERECTILE DYSFUNCTION [None]
  - GLOBAL AMNESIA [None]
  - HYPERHIDROSIS [None]
  - HYPERSENSITIVITY [None]
  - HYPOTENSION [None]
  - INJURY [None]
  - MIGRAINE [None]
  - MUSCLE STRAIN [None]
  - NASAL CONGESTION [None]
  - NAUSEA [None]
  - NECK PAIN [None]
  - NEUROPATHY [None]
  - OTITIS MEDIA [None]
  - OVERDOSE [None]
  - PAIN [None]
  - PHARYNGOLARYNGEAL PAIN [None]
  - PRODUCTIVE COUGH [None]
  - RECTAL HAEMORRHAGE [None]
  - SINUSITIS [None]
  - SLEEP APNOEA SYNDROME [None]
  - SLEEP DISORDER [None]
  - TRANSIENT ISCHAEMIC ATTACK [None]
  - URETHRAL HAEMORRHAGE [None]
  - VIRAL INFECTION [None]
